FAERS Safety Report 4498360-9 (Version None)
Quarter: 2004Q4

REPORT INFORMATION
  Report Type: 
  Country: None (occurrence: None)
  Receive Date: 20041105
  Receipt Date: 20041101
  Transmission Date: 20050328
  Serious: Yes (Life-Threatening, Hospitalization)
  Sender: FDA-Public Use
  Company Number: THQ2004A00921

PATIENT
  Age: 87 Year
  Sex: Female

DRUGS (2)
  1. LANSOPRAZOLE [Suspect]
     Indication: DUODENAL ULCER
     Dosage: PER ORAL
     Route: 048
     Dates: start: 20040401, end: 20040801
  2. RAMIPRIL [Concomitant]

REACTIONS (4)
  - APLASTIC ANAEMIA [None]
  - BONE MARROW DEPRESSION [None]
  - GASTROINTESTINAL HAEMORRHAGE [None]
  - PANCYTOPENIA [None]
